FAERS Safety Report 8733852 (Version 2)
Quarter: 2012Q4

REPORT INFORMATION
  Report Type: Report from Study
  Country: US (occurrence: US)
  Receive Date: 20120821
  Receipt Date: 20120831
  Transmission Date: 20130627
  Serious: Yes (Hospitalization, Other)
  Sender: FDA-Public Use
  Company Number: US-ASTELLAS-2012US007072

PATIENT
  Age: 76 None
  Sex: Female
  Weight: 59 kg

DRUGS (6)
  1. ERLOTINIB TABLET [Suspect]
     Indication: NON-SMALL CELL LUNG CANCER
     Dosage: 150 mg, UID/QD
     Route: 048
     Dates: start: 20120503
  2. TAXOL [Concomitant]
     Indication: NON-SMALL CELL LUNG CANCER
     Dosage: UNK
     Route: 042
     Dates: start: 201205, end: 201207
  3. CARBOPLATIN [Concomitant]
     Indication: NON-SMALL CELL LUNG CANCER
     Dosage: UNK
     Route: 042
     Dates: start: 201205, end: 201207
  4. MAGNESIUM [Concomitant]
     Indication: PRODUCT USED FOR UNKNOWN INDICATION
     Dosage: UNK
     Route: 048
     Dates: start: 201105
  5. FIRST MOUTHWASH BXN [Concomitant]
     Indication: STOMATITIS
     Dosage: UNK
     Route: 048
     Dates: start: 201207
  6. IMODIUM [Concomitant]
     Indication: DIARRHOEA
     Dosage: UNK
     Route: 048
     Dates: start: 201205

REACTIONS (10)
  - Cerebral haemorrhage [Unknown]
  - Blood magnesium decreased [Unknown]
  - Fatigue [Not Recovered/Not Resolved]
  - Diarrhoea [Recovering/Resolving]
  - Rash [Recovered/Resolved]
  - Genital rash [Recovered/Resolved]
  - Rash [Recovered/Resolved]
  - Vision blurred [Not Recovered/Not Resolved]
  - Brain operation [Recovering/Resolving]
  - Fall [Recovered/Resolved]
